FAERS Safety Report 7595293-6 (Version None)
Quarter: 2011Q2

REPORT INFORMATION
  Report Type: 
  Country: None (occurrence: None)
  Receive Date: 20110620
  Receipt Date: 20110419
  Transmission Date: 20111010
  Serious: Yes (Death)
  Sender: FDA-Public Use
  Company Number: UTC-006466

PATIENT
  Age: 63 Year
  Sex: Female
  Weight: 75.45 kg

DRUGS (3)
  1. REVATIO [Concomitant]
  2. TYVASO [Suspect]
     Indication: PULMONARY ARTERIAL HYPERTENSION
     Dosage: INHALATION
     Route: 055
     Dates: start: 20110202
  3. TRACLEER [Concomitant]

REACTIONS (1)
  - PULMONARY HYPERTENSION [None]
